FAERS Safety Report 5464997-3 (Version None)
Quarter: 2007Q3

REPORT INFORMATION
  Report Type: 
  Country: None (occurrence: None)
  Receive Date: 20070820
  Receipt Date: 20070615
  Transmission Date: 20080115
  Serious: No
  Sender: FDA-Public Use
  Company Number: TPA2007A01319

PATIENT
  Sex: Female

DRUGS (3)
  1. ROZEREM [Suspect]
     Indication: INSOMNIA
     Dosage: 1/4 TAB, QHS, PER ORAL
     Route: 048
     Dates: start: 20070607
  2. REMERON [Concomitant]
  3. NEURONTIN [Concomitant]

REACTIONS (4)
  - CONSTIPATION [None]
  - DRUG INEFFECTIVE [None]
  - HYPERSOMNIA [None]
  - UNDERDOSE [None]
